FAERS Safety Report 6294926-4 (Version None)
Quarter: 2009Q3

REPORT INFORMATION
  Report Type: 
  Country: None (occurrence: None)
  Receive Date: 20090731
  Receipt Date: 20090731
  Transmission Date: 20100115
  Serious: Yes (Congenital Anomaly)
  Sender: FDA-Public Use
  Company Number: None

PATIENT
  Age: 6 Month
  Sex: Female
  Weight: 8.6183 kg

DRUGS (1)
  1. NUVARING [Suspect]
     Indication: CONTRACEPTION
     Dosage: 1 VAGINAL RING, ONCE MONTHLY, VAG
     Route: 067
     Dates: start: 20070101, end: 20080709

REACTIONS (3)
  - HAEMANGIOMA CONGENITAL [None]
  - MENSTRUATION IRREGULAR [None]
  - PREGNANCY WITH IMPLANT CONTRACEPTIVE [None]
